FAERS Safety Report 8024876-4 (Version None)
Quarter: 2012Q1

REPORT INFORMATION
  Report Type: 
  Country: None (occurrence: None)
  Receive Date: 20120105
  Receipt Date: 20111228
  Transmission Date: 20120608
  Serious: Yes (Other)
  Sender: FDA-Public Use
  Company Number: GB-TEVA-315574ISR

PATIENT
  Age: 70 Year
  Sex: Female
  Weight: 77.5 kg

DRUGS (6)
  1. BENDROFLUMETHIAZIDE [Concomitant]
     Indication: ESSENTIAL HYPERTENSION
     Route: 048
     Dates: start: 20111111
  2. CANDESARTAN CILEXETIL [Concomitant]
     Indication: ESSENTIAL HYPERTENSION
     Route: 048
     Dates: start: 20060612
  3. EUMOVATE [Concomitant]
     Indication: CELLULITIS
     Route: 061
     Dates: start: 20111111
  4. AMLODIPINE [Suspect]
     Indication: ESSENTIAL HYPERTENSION
     Route: 048
     Dates: start: 20051221, end: 20111111
  5. DOUBLEBASE [Concomitant]
     Indication: CELLULITIS
     Route: 061
     Dates: start: 20111111
  6. FLUCLOXACILLIN [Concomitant]
     Indication: CELLULITIS
     Route: 048
     Dates: start: 20111010, end: 20111012

REACTIONS (2)
  - ULCER [None]
  - CELLULITIS [None]
